FAERS Safety Report 8232318-9 (Version None)
Quarter: 2012Q1

REPORT INFORMATION
  Report Type: 
  Country: None (occurrence: None)
  Receive Date: 20120323
  Receipt Date: 20120314
  Transmission Date: 20120608
  Serious: Yes (Congenital Anomaly)
  Sender: FDA-Public Use
  Company Number: DE-TEVA-328154GER

PATIENT
  Sex: Male
  Weight: 3.335 kg

DRUGS (2)
  1. FOLSAN [Concomitant]
     Route: 064
  2. LAMOTRIGINE [Suspect]
     Route: 064

REACTIONS (2)
  - VENTRICULAR SEPTAL DEFECT [None]
  - ATRIAL SEPTAL DEFECT [None]
